FAERS Safety Report 5370124-3 (Version None)
Quarter: 2007Q2

REPORT INFORMATION
  Report Type: 
  Country: None (occurrence: None)
  Receive Date: 20070613
  Receipt Date: 20070404
  Transmission Date: 20071010
  Serious: Yes (Hospitalization, Other)
  Sender: FDA-Public Use
  Company Number: PHEH2007US04318

PATIENT
  Age: 75 Year
  Sex: Male
  Weight: 77.1 kg

DRUGS (3)
  1. EXELON [Suspect]
     Indication: DEMENTIA
     Dosage: 1.5 MG, BID, ORAL
     Route: 048
     Dates: start: 20070121, end: 20070210
  2. SINEMET [Concomitant]
  3. NAMENDA [Concomitant]

REACTIONS (5)
  - APHASIA [None]
  - CONFUSIONAL STATE [None]
  - FALL [None]
  - GAIT DISTURBANCE [None]
  - ORTHOSTATIC HYPOTENSION [None]
